FAERS Safety Report 16592290 (Version 6)
Quarter: 2020Q3

REPORT INFORMATION
  Report Type: Spontaneous
  Country: JP (occurrence: JP)
  Receive Date: 20190718
  Receipt Date: 20200828
  Transmission Date: 20201102
  Serious: Yes (Death, Other)
  Sender: FDA-Public Use
  Company Number: JP-GILEAD-2019-0418393

PATIENT
  Age: 73 Year
  Sex: Female
  Weight: 33 kg

DRUGS (16)
  1. URSODEOXYCHOLIC ACID [Concomitant]
     Active Substance: URSODIOL
     Indication: HEPATIC CIRRHOSIS
  2. SODIUM CHLORIDE. [Concomitant]
     Active Substance: SODIUM CHLORIDE
     Indication: HYPONATRAEMIA
     Dosage: 3 G, TID
     Route: 048
     Dates: start: 20190622, end: 20190708
  3. URSODEOXYCHOLIC ACID [Concomitant]
     Active Substance: URSODIOL
     Indication: CHRONIC HEPATITIS C
     Dosage: 100 MG, TID
     Route: 048
     Dates: start: 20190622, end: 20190708
  4. AMINOLEBAN EN [Concomitant]
     Active Substance: UNSPECIFIED INGREDIENT
     Indication: HEPATIC ENCEPHALOPATHY
     Dosage: 1PACKAGE, QD
     Route: 048
     Dates: start: 20190622, end: 20190708
  5. EPCLUSA [Suspect]
     Active Substance: SOFOSBUVIR\VELPATASVIR
     Indication: HEPATITIS C
     Dosage: 1 DOSAGE FORM, QD
     Route: 050
     Dates: start: 20190705, end: 20190708
  6. SPIRONOLACTONE. [Concomitant]
     Active Substance: SPIRONOLACTONE
     Indication: ASCITES
     Dosage: 25 MG, QD
     Route: 048
     Dates: start: 20190622, end: 20190708
  7. URSO [Concomitant]
     Active Substance: URSODIOL
     Indication: CHRONIC HEPATITIS C
     Dosage: UNK, TID
     Route: 065
     Dates: start: 20190703, end: 20190708
  8. SAMSCA [Concomitant]
     Active Substance: TOLVAPTAN
     Indication: CARDIAC FAILURE
     Dosage: 3.75 MG, QD
     Route: 048
     Dates: start: 20190703, end: 20190708
  9. PIARLE [Concomitant]
     Active Substance: LACTULOSE
     Indication: HEPATIC ENCEPHALOPATHY
     Dosage: 20 ML, QD
     Route: 048
     Dates: start: 20190627, end: 20190708
  10. L CARTIN [Concomitant]
     Active Substance: LEVOCARNITINE HYDROCHLORIDE
     Indication: HEPATIC ENCEPHALOPATHY
     Dosage: 10 ML, QD
     Route: 048
     Dates: start: 20190622, end: 20190708
  11. TERUFIS [Concomitant]
     Indication: HEPATIC ENCEPHALOPATHY
     Dosage: 500 ML
     Route: 041
     Dates: start: 20190620, end: 20190702
  12. TERUFIS [Concomitant]
     Dosage: 200 ML
     Route: 041
     Dates: start: 20190703, end: 20190708
  13. EPCLUSA [Suspect]
     Active Substance: SOFOSBUVIR\VELPATASVIR
     Indication: HEPATIC CIRRHOSIS
  14. ASPARA POTASSIUM [Concomitant]
     Active Substance: POTASSIUM ASPARTATE
     Indication: HYPOKALAEMIA
     Dosage: 300 MG, QD
     Route: 048
     Dates: start: 20190624, end: 20190708
  15. LANSOPRAZOLE. [Concomitant]
     Active Substance: LANSOPRAZOLE
     Indication: GASTROOESOPHAGEAL REFLUX DISEASE
     Dosage: 15 MG, QD
     Route: 048
     Dates: start: 20190622, end: 20190708
  16. BESACOLIN [Concomitant]
     Active Substance: BETHANECHOL CHLORIDE
     Indication: NEUROGENIC BLADDER
     Dosage: 0.6 G, TID
     Route: 048
     Dates: start: 20190625, end: 20190708

REACTIONS (3)
  - Pneumonia aspiration [Fatal]
  - Off label use [Unknown]
  - Hepatic failure [Not Recovered/Not Resolved]

NARRATIVE: CASE EVENT DATE: 20190705
